FAERS Safety Report 19808363 (Version 1)
Quarter: 2021Q3

REPORT INFORMATION
  Report Type: Spontaneous
  Country: IN (occurrence: IN)
  Receive Date: 20210909
  Receipt Date: 20210909
  Transmission Date: 20211014
  Serious: Yes (Hospitalization, Other)
  Sender: FDA-Public Use
  Company Number: IN-NOVITIUMPHARMA-2021INNVP00075

PATIENT
  Age: 28 Year
  Sex: Male

DRUGS (1)
  1. DAPSONE. [Suspect]
     Active Substance: DAPSONE
     Indication: LICHEN PLANUS
     Route: 048

REACTIONS (6)
  - Drug-induced liver injury [Recovered/Resolved]
  - Thyroiditis [Recovered/Resolved]
  - Lymphocytosis [Recovered/Resolved]
  - Rash [Recovered/Resolved]
  - Carditis [Recovered/Resolved]
  - Off label use [Unknown]
